FAERS Safety Report 9250671 (Version 1)
Quarter: 2013Q1

REPORT INFORMATION
  Report Type: Spontaneous
  Country: US (occurrence: None)
  Receive Date: 20130305
  Receipt Date: 20130305
  Transmission Date: 20140127
  Serious: Yes (Hospitalization)
  Sender: FDA-Public Use
  Company Number: 163-21880-12100757

PATIENT
  Age: 64 Year
  Sex: Female
  Weight: 77.11 kg

DRUGS (8)
  1. REVLIMID [Suspect]
     Indication: PLASMA CELL MYELOMA
     Route: 048
     Dates: start: 20120913
  2. ACYCLOVIR (ACICLOVIR) [Concomitant]
  3. LETROZOLE (LETROZOLE) [Concomitant]
  4. OXYCODONE/APAP (OXYCODONE/APAP) [Concomitant]
  5. PROCHLORPERAZINE (PROCHLORPERAZINE) [Concomitant]
  6. ONDANSETRON (ONDANSETRON) [Concomitant]
  7. VELCADE (BORTEZOMIB) [Concomitant]
  8. DEXAMETHASONE (DEXAMETHASONE) [Concomitant]

REACTIONS (1)
  - Pulmonary embolism [None]
